FAERS Safety Report 15798573 (Version 1)
Quarter: 2019Q1

REPORT INFORMATION
  Report Type: Spontaneous
  Country: CZ (occurrence: CZ)
  Receive Date: 20190108
  Receipt Date: 20190108
  Transmission Date: 20190417
  Serious: Yes (Hospitalization, Other)
  Sender: FDA-Public Use
  Company Number: PHHY2019CZ001403

PATIENT
  Age: 53 Year
  Sex: Male
  Weight: 41 kg

DRUGS (5)
  1. GRANISETRON KABI [Suspect]
     Active Substance: GRANISETRON
     Indication: RECTOSIGMOID CANCER
     Dosage: 3 MG, UNK
     Route: 042
     Dates: start: 20180207, end: 20181130
  2. RILMENIDINE [Concomitant]
     Active Substance: RILMENIDINE
     Indication: PRODUCT USED FOR UNKNOWN INDICATION
     Dosage: UNK
     Route: 065
  3. RANITIDINE. [Suspect]
     Active Substance: RANITIDINE
     Indication: RECTOSIGMOID CANCER
     Dosage: UNK
     Route: 065
  4. DITHIADEN [Suspect]
     Active Substance: BISULEPIN
     Indication: RECTOSIGMOID CANCER
     Dosage: UNK
     Route: 065
  5. TRIPLIXAM [Concomitant]
     Active Substance: AMLODIPINE BESYLATE\INDAPAMIDE\PERINDOPRIL ARGININE
     Indication: PRODUCT USED FOR UNKNOWN INDICATION
     Dosage: UNK
     Route: 065

REACTIONS (4)
  - Nausea [Recovering/Resolving]
  - Vomiting [Recovering/Resolving]
  - Hypersensitivity [Recovering/Resolving]
  - Erythema [Recovering/Resolving]

NARRATIVE: CASE EVENT DATE: 20181130
